FAERS Safety Report 13213045 (Version 1)
Quarter: 2017Q1

REPORT INFORMATION
  Report Type: Spontaneous
  Country: US (occurrence: US)
  Receive Date: 20170209
  Receipt Date: 20170209
  Transmission Date: 20170428
  Serious: Yes (Death, Other)
  Sender: FDA-Public Use
  Company Number: US-VIFOR (INTERNATIONAL) INC.-VIT-2017-01064

PATIENT
  Age: 77 Year
  Sex: Male

DRUGS (19)
  1. ADVAIR DISKUS [Concomitant]
     Active Substance: FLUTICASONE PROPIONATE\SALMETEROL XINAFOATE
  2. AMLODIPINE BESILATE [Concomitant]
     Active Substance: AMLODIPINE BESYLATE
  3. DIABETIC TUSSIN EXPECTORANT [Concomitant]
     Active Substance: GUAIFENESIN
  4. CARVEDILOL. [Concomitant]
     Active Substance: CARVEDILOL
  5. CEFALEXIN [Concomitant]
     Active Substance: CEPHALEXIN
  6. FERROUS GLUCONATE [Concomitant]
     Active Substance: FERROUS GLUCONATE
  7. VELTASSA [Suspect]
     Active Substance: PATIROMER
     Indication: PRODUCT USED FOR UNKNOWN INDICATION
     Route: 048
     Dates: start: 20161214
  8. ATORVASTATIN CALCIUM. [Concomitant]
     Active Substance: ATORVASTATIN CALCIUM
  9. VELTASSA [Suspect]
     Active Substance: PATIROMER
     Indication: HYPERLIPIDAEMIA
  10. VELTASSA [Suspect]
     Active Substance: PATIROMER
     Indication: HYPERKALAEMIA
  11. FINASTERIDE. [Concomitant]
     Active Substance: FINASTERIDE
  12. ASPARTAME [Concomitant]
     Active Substance: ASPARTAME
  13. FUROSEMIDE. [Concomitant]
     Active Substance: FUROSEMIDE
  14. GLUCAGON. [Concomitant]
     Active Substance: GLUCAGON
  15. SALBUTAMOL SULFATE [Concomitant]
     Active Substance: ALBUTEROL SULFATE
  16. DESVENLAFAXINE. [Concomitant]
     Active Substance: DESVENLAFAXINE
  17. DIVALPROEX SODIUM. [Concomitant]
     Active Substance: DIVALPROEX SODIUM
  18. ELIQUIS [Concomitant]
     Active Substance: APIXABAN
  19. PARACETAMOL [Concomitant]
     Active Substance: ACETAMINOPHEN

REACTIONS (4)
  - Hospice care [Unknown]
  - Cardiac failure congestive [Unknown]
  - Death [Fatal]
  - Oedema [Unknown]

NARRATIVE: CASE EVENT DATE: 20170124
